FAERS Safety Report 5430677-3 (Version None)
Quarter: 2007Q3

REPORT INFORMATION
  Report Type: 
  Country: None (occurrence: None)
  Receive Date: 20070830
  Receipt Date: 20070817
  Transmission Date: 20080115
  Serious: Yes (Hospitalization)
  Sender: FDA-Public Use
  Company Number: FR-SOLVAY-00207033707

PATIENT
  Age: 30148 Day
  Sex: Male

DRUGS (6)
  1. LANTUS [Concomitant]
     Indication: ILL-DEFINED DISORDER
     Dosage: DAILY DOSE:  UNKNOWN
     Route: 065
  2. PERINDOPRIL ERBUMINE [Suspect]
     Indication: HYPERTENSION
     Dosage: DAILY DOSE: 4 MILLIGRAM(S)
     Route: 048
  3. PLAVIX [Suspect]
     Indication: ISCHAEMIC STROKE
     Dosage: DAILY DOSE: 75 MILLIGRAM(S)
     Route: 048
     Dates: end: 20070101
  4. HUMALOG [Concomitant]
     Indication: ILL-DEFINED DISORDER
     Dosage: DAILY DOSE:  UNKNOWN
     Route: 065
  5. TAHOR [Suspect]
     Indication: HYPERCHOLESTEROLAEMIA
     Dosage: DAILY DOSE: 20 MILLIGRAM(S)
     Route: 048
  6. AUGMENTIN '125' [Suspect]
     Dosage: DAILY DOSE: 3 GRAM(S)
     Route: 048
     Dates: start: 20070701

REACTIONS (5)
  - CELLULITIS [None]
  - HAEMATURIA [None]
  - POST PROCEDURAL HAEMATOMA [None]
  - PYREXIA [None]
  - SKIN CANCER [None]
